FAERS Safety Report 5891758-3 (Version None)
Quarter: 2008Q3

REPORT INFORMATION
  Report Type: 
  Country: None (occurrence: None)
  Receive Date: 20080922
  Receipt Date: 20080910
  Transmission Date: 20090109
  Serious: Yes (Death, Other)
  Sender: FDA-Public Use
  Company Number: JP-PFIZER INC-2008071191

PATIENT
  Sex: Male
  Weight: 70 kg

DRUGS (9)
  1. CHANTIX [Suspect]
     Indication: EX-TOBACCO USER
     Dosage: DAILY DOSE:2MG
     Dates: start: 20080804, end: 20080816
  2. NATEGLINIDE [Concomitant]
     Indication: DIABETES MELLITUS
     Route: 048
     Dates: start: 20060204
  3. PRAVASTATIN SODIUM [Concomitant]
     Indication: LIPIDS ABNORMAL
     Route: 048
     Dates: start: 20070115
  4. ASPIRIN [Concomitant]
     Indication: CAROTID ARTERY STENOSIS
     Route: 048
     Dates: start: 20040304
  5. NITRODERM [Concomitant]
     Route: 062
     Dates: start: 20061023
  6. BLOPRESS [Concomitant]
     Indication: CARDIAC FAILURE
     Route: 048
     Dates: start: 20061106
  7. LASIX [Concomitant]
     Indication: CARDIAC FAILURE
     Route: 048
     Dates: start: 20061106
  8. RANITIDINE HYDROCHLORIDE [Concomitant]
     Route: 048
     Dates: start: 20061106
  9. LENDORMIN [Concomitant]
     Route: 048
     Dates: start: 20040830

REACTIONS (6)
  - AGGRESSION [None]
  - AGITATION [None]
  - COMPLETED SUICIDE [None]
  - DYSPHORIA [None]
  - IRRITABILITY [None]
  - PERSONALITY CHANGE [None]
